FAERS Safety Report 9261689 (Version 1)
Quarter: 2013Q2

REPORT INFORMATION
  Report Type: Spontaneous
  Country: US (occurrence: US)
  Receive Date: 20130429
  Receipt Date: 20130429
  Transmission Date: 20140414
  Serious: No
  Sender: FDA-Public Use
  Company Number: US-TEVA-401128USA

PATIENT
  Sex: Female
  Weight: 86.26 kg

DRUGS (6)
  1. ACTIQ [Suspect]
     Route: 048
     Dates: start: 2006
  2. WELLBUTRIN [Concomitant]
     Indication: DEPRESSION
  3. LEXAPRO [Concomitant]
     Indication: DEPRESSION
  4. LAMICTAL [Concomitant]
     Indication: DEPRESSION
  5. OXYCODONE [Concomitant]
     Indication: PAIN
  6. FENTANYL [Concomitant]
     Indication: PAIN

REACTIONS (1)
  - Pain [Unknown]
